FAERS Safety Report 17519510 (Version 1)
Quarter: 2020Q1

REPORT INFORMATION
  Report Type: Spontaneous
  Country: US (occurrence: US)
  Receive Date: 20200228
  Receipt Date: 20200228
  Transmission Date: 20200409
  Serious: No
  Sender: FDA-Public Use
  Company Number: None

PATIENT
  Age: 10 Year
  Sex: Female

DRUGS (4)
  1. PULMOZYME [Suspect]
     Active Substance: DORNASE ALFA
     Indication: CYSTIC FIBROSIS
     Route: 055
     Dates: start: 20200112
  2. PREDNISONE. [Concomitant]
     Active Substance: PREDNISONE
  3. CEFDINIR. [Concomitant]
     Active Substance: CEFDINIR
  4. AMOX/K CLAV [Concomitant]
     Active Substance: AMOXICILLIN\CLAVULANATE POTASSIUM

REACTIONS (3)
  - Surgery [None]
  - Dyspepsia [None]
  - Therapy cessation [None]

NARRATIVE: CASE EVENT DATE: 20200228
